FAERS Safety Report 5153165-0 (Version None)
Quarter: 2006Q4

REPORT INFORMATION
  Report Type: 
  Country: None (occurrence: None)
  Receive Date: 20061113
  Receipt Date: 20061031
  Transmission Date: 20070319
  Serious: Yes (Hospitalization)
  Sender: FDA-Public Use
  Company Number: 230005M06FIN

PATIENT
  Age: 51 Year
  Sex: Female

DRUGS (1)
  1. REBIF [Suspect]
     Dosage: 44 MCG, 3 IN 1 WEEKS

REACTIONS (5)
  - CONDITION AGGRAVATED [None]
  - CONFUSIONAL STATE [None]
  - PARALYSIS [None]
  - PNEUMONIA [None]
  - STATUS EPILEPTICUS [None]
